FAERS Safety Report 7558842-X (Version None)
Quarter: 2011Q2

REPORT INFORMATION
  Report Type: 
  Country: None (occurrence: None)
  Receive Date: 20110613
  Receipt Date: 20110524
  Transmission Date: 20111010
  Serious: Yes (Other)
  Sender: FDA-Public Use
  Company Number: 2011-0049-EUR

PATIENT
  Age: 25 Year
  Sex: Female

DRUGS (1)
  1. XYLOCAINE W/ EPINEPHRINE [Suspect]
     Indication: INFILTRATION ANAESTHESIA
     Dosage: (2.2 MBQ, 2 TOTAL)

REACTIONS (10)
  - DIPLOPIA [None]
  - OPHTHALMOPLEGIA [None]
  - EYELID PTOSIS [None]
  - IIIRD NERVE PARALYSIS [None]
  - IVTH NERVE PARALYSIS [None]
  - PAIN [None]
  - MYDRIASIS [None]
  - VITH NERVE PARALYSIS [None]
  - BLINDNESS UNILATERAL [None]
  - PUPILLARY REFLEX IMPAIRED [None]
